FAERS Safety Report 21349972 (Version 3)
Quarter: 2023Q4

REPORT INFORMATION
  Report Type: Report from Study
  Country: US (occurrence: US)
  Receive Date: 20220919
  Receipt Date: 20231227
  Transmission Date: 20240110
  Serious: Yes (Other)
  Sender: FDA-Public Use
  Company Number: US-NOVARTISTESTPH-NVSC2022US211117

PATIENT
  Age: 29 Year
  Sex: Female

DRUGS (1)
  1. KESIMPTA [Suspect]
     Active Substance: OFATUMUMAB
     Indication: Relapsing multiple sclerosis
     Dosage: 20 MG, QMO
     Route: 058
     Dates: start: 20220706

REACTIONS (8)
  - Arthralgia [Unknown]
  - Neuralgia [Unknown]
  - Cough [Recovering/Resolving]
  - Nasal congestion [Recovering/Resolving]
  - Fatigue [Unknown]
  - Inappropriate schedule of product administration [Unknown]
  - Stress [Unknown]
  - Product supply issue [Unknown]

NARRATIVE: CASE EVENT DATE: 20220911
